FAERS Safety Report 7593639-6 (Version None)
Quarter: 2011Q3

REPORT INFORMATION
  Report Type: 
  Country: None (occurrence: None)
  Receive Date: 20110706
  Receipt Date: 20110630
  Transmission Date: 20111222
  Serious: Yes (Hospitalization)
  Sender: FDA-Public Use
  Company Number: PHHO2011NL11251

PATIENT
  Sex: Female
  Weight: 45.5 kg

DRUGS (5)
  1. SELOKEEN [Concomitant]
     Indication: HYPERTENSION
     Dosage: UNK
     Dates: start: 20110411, end: 20110604
  2. SIMULECT [Suspect]
     Indication: RENAL TRANSPLANT
     Dosage: 20 MG, BID
     Dates: start: 20110410, end: 20110504
  3. PROGRAF [Suspect]
     Indication: RENAL TRANSPLANT
     Dosage: 5 MG, BID
     Dates: start: 20110410, end: 20110504
  4. AMLODIPINE [Concomitant]
     Indication: HYPERTENSION
     Dosage: UNK
     Dates: start: 20110411, end: 20110604
  5. MYCOPHENOLIC ACID [Suspect]
     Indication: RENAL TRANSPLANT
     Dosage: 360 MG, BID
     Dates: start: 20110410, end: 20110504

REACTIONS (1)
  - PYELONEPHRITIS [None]
